FAERS Safety Report 8933704 (Version 1)
Quarter: 2012Q4

REPORT INFORMATION
  Report Type: 
  Country: GB (occurrence: GB)
  Receive Date: 20121129
  Receipt Date: 20121129
  Transmission Date: 20130627
  Serious: Yes (Other)
  Sender: FDA-Public Use
  Company Number: PHHY2012GB108072

PATIENT
  Age: 21 Year
  Sex: Female

DRUGS (2)
  1. METHYLPHENIDATE [Suspect]
     Indication: ATTENTION DEFICIT/HYPERACTIVITY DISORDER
     Dosage: 72 mg/day
  2. METHYLPHENIDATE [Suspect]
     Dosage: 72 mg/day

REACTIONS (11)
  - Road traffic accident [Unknown]
  - Intentional self-injury [Unknown]
  - General physical health deterioration [Unknown]
  - Irritability [Unknown]
  - Anxiety [Unknown]
  - Mood altered [Unknown]
  - Psychomotor hyperactivity [Unknown]
  - Impulsive behaviour [Unknown]
  - Withdrawal syndrome [Unknown]
  - Exposure during pregnancy [Unknown]
  - Normal newborn [Unknown]
